FAERS Safety Report 21775093 (Version 1)
Quarter: 2022Q4

REPORT INFORMATION
  Report Type: Spontaneous
  Country: FR (occurrence: FR)
  Receive Date: 20221225
  Receipt Date: 20221225
  Transmission Date: 20230112
  Serious: Yes (Other)
  Sender: FDA-Public Use
  Company Number: FR-BAYER-2022P023521

PATIENT
  Age: 77 Year
  Sex: Female

DRUGS (2)
  1. XARELTO [Suspect]
     Active Substance: RIVAROXABAN
     Indication: Thrombocytopenia
     Dosage: 20 MG, QD
     Route: 048
     Dates: start: 20221101
  2. COUMADIN [Concomitant]
     Active Substance: WARFARIN SODIUM
     Indication: Thrombocytopenia
     Dosage: UNK

REACTIONS (4)
  - Arthralgia [Unknown]
  - Myalgia [Unknown]
  - Off label use [Unknown]
  - Nausea [Unknown]

NARRATIVE: CASE EVENT DATE: 20221111
